FAERS Safety Report 6291340-2 (Version None)
Quarter: 2009Q3

REPORT INFORMATION
  Report Type: 
  Country: None (occurrence: None)
  Receive Date: 20090729
  Receipt Date: 20090520
  Transmission Date: 20100115
  Serious: Yes (Hospitalization)
  Sender: FDA-Public Use
  Company Number: HECT-1000052

PATIENT
  Age: 52 Year
  Sex: Male

DRUGS (2)
  1. HECTOROL [Suspect]
     Indication: OFF LABEL USE
     Dosage: 1000 MCG, QD, ORAL
     Route: 048
  2. COLECALCIFEROL [Concomitant]

REACTIONS (1)
  - CHEST PAIN [None]
